FAERS Safety Report 25730525 (Version 1)
Quarter: 2025Q3

REPORT INFORMATION
  Report Type: Spontaneous
  Country: EU (occurrence: EU)
  Receive Date: 20250827
  Receipt Date: 20250827
  Transmission Date: 20251020
  Serious: Yes (Hospitalization)
  Sender: MYLAN
  Company Number: None

PATIENT
  Age: 58 Year
  Sex: Male

DRUGS (20)
  1. ACETAMINOPHEN [Suspect]
     Active Substance: ACETAMINOPHEN
     Indication: Pain
     Dosage: 1 GRAM, QD
     Dates: start: 20250723, end: 20250728
  2. ACETAMINOPHEN [Suspect]
     Active Substance: ACETAMINOPHEN
     Dosage: 1 GRAM, QD
     Route: 048
     Dates: start: 20250723, end: 20250728
  3. ACETAMINOPHEN [Suspect]
     Active Substance: ACETAMINOPHEN
     Dosage: 1 GRAM, QD
     Route: 048
     Dates: start: 20250723, end: 20250728
  4. ACETAMINOPHEN [Suspect]
     Active Substance: ACETAMINOPHEN
     Dosage: 1 GRAM, QD
     Dates: start: 20250723, end: 20250728
  5. RAMIPRIL [Suspect]
     Active Substance: RAMIPRIL
     Indication: Hypertension
     Dosage: 2.5 MILLIGRAM, QD
     Dates: start: 20250722, end: 20250724
  6. RAMIPRIL [Suspect]
     Active Substance: RAMIPRIL
     Dosage: 2.5 MILLIGRAM, QD
     Dates: start: 20250722, end: 20250724
  7. RAMIPRIL [Suspect]
     Active Substance: RAMIPRIL
     Dosage: 2.5 MILLIGRAM, QD
     Route: 048
     Dates: start: 20250722, end: 20250724
  8. RAMIPRIL [Suspect]
     Active Substance: RAMIPRIL
     Dosage: 2.5 MILLIGRAM, QD
     Route: 048
     Dates: start: 20250722, end: 20250724
  9. RAMIPRIL [Suspect]
     Active Substance: RAMIPRIL
     Dosage: 7.5 MILLIGRAM, QD
     Dates: start: 20250724, end: 20250730
  10. RAMIPRIL [Suspect]
     Active Substance: RAMIPRIL
     Dosage: 7.5 MILLIGRAM, QD
     Dates: start: 20250724, end: 20250730
  11. RAMIPRIL [Suspect]
     Active Substance: RAMIPRIL
     Dosage: 7.5 MILLIGRAM, QD
     Route: 048
     Dates: start: 20250724, end: 20250730
  12. RAMIPRIL [Suspect]
     Active Substance: RAMIPRIL
     Dosage: 7.5 MILLIGRAM, QD
     Route: 048
     Dates: start: 20250724, end: 20250730
  13. RAMIPRIL [Suspect]
     Active Substance: RAMIPRIL
     Dosage: 2.5 MILLIGRAM, QD
     Dates: start: 20250730, end: 20250731
  14. RAMIPRIL [Suspect]
     Active Substance: RAMIPRIL
     Dosage: 2.5 MILLIGRAM, QD
     Route: 048
     Dates: start: 20250730, end: 20250731
  15. RAMIPRIL [Suspect]
     Active Substance: RAMIPRIL
     Dosage: 2.5 MILLIGRAM, QD
     Dates: start: 20250730, end: 20250731
  16. RAMIPRIL [Suspect]
     Active Substance: RAMIPRIL
     Dosage: 2.5 MILLIGRAM, QD
     Route: 048
     Dates: start: 20250730, end: 20250731
  17. PANTOPRAZOLE [Suspect]
     Active Substance: PANTOPRAZOLE
     Indication: Product used for unknown indication
     Dosage: 20 MILLIGRAM, QD
     Dates: start: 20250723, end: 20250728
  18. PANTOPRAZOLE [Suspect]
     Active Substance: PANTOPRAZOLE
     Dosage: 20 MILLIGRAM, QD
     Route: 048
     Dates: start: 20250723, end: 20250728
  19. PANTOPRAZOLE [Suspect]
     Active Substance: PANTOPRAZOLE
     Dosage: 20 MILLIGRAM, QD
     Route: 048
     Dates: start: 20250723, end: 20250728
  20. PANTOPRAZOLE [Suspect]
     Active Substance: PANTOPRAZOLE
     Dosage: 20 MILLIGRAM, QD
     Dates: start: 20250723, end: 20250728

REACTIONS (1)
  - Cholestatic liver injury [Recovering/Resolving]

NARRATIVE: CASE EVENT DATE: 20250725
